FAERS Safety Report 4970092-X (Version None)
Quarter: 2006Q2

REPORT INFORMATION
  Report Type: 
  Country: None (occurrence: None)
  Receive Date: 20060412
  Receipt Date: 20060405
  Transmission Date: 20061013
  Serious: Yes (Death, Hospitalization)
  Sender: FDA-Public Use
  Company Number: PHEH2006US04497

PATIENT
  Age: 84 Year
  Sex: Male
  Weight: 68.934 kg

DRUGS (1)
  1. EXJADE [Suspect]
     Indication: BLOOD IRON INCREASED
     Dosage: 1500 MG, QD
     Dates: start: 20060101, end: 20060315

REACTIONS (5)
  - ABDOMINAL PAIN [None]
  - CARDIAC DISORDER [None]
  - CARDIAC FAILURE [None]
  - CONGESTIVE CARDIOMYOPATHY [None]
  - HYPOAESTHESIA [None]
